FAERS Safety Report 6665798-0 (Version None)
Quarter: 2010Q2

REPORT INFORMATION
  Report Type: 
  Country: None (occurrence: None)
  Receive Date: 20100402
  Receipt Date: 20100401
  Transmission Date: 20101027
  Serious: Yes (Death)
  Sender: FDA-Public Use
  Company Number: IT-SANOFI-AVENTIS-2010SA018447

PATIENT
  Age: 53 Year
  Sex: Male

DRUGS (4)
  1. SOLOSA [Suspect]
     Route: 048
     Dates: start: 20081217, end: 20100110
  2. SOLOSA [Suspect]
     Route: 048
     Dates: start: 20100111, end: 20100218
  3. GLUCOPHAGE [Suspect]
     Route: 048
     Dates: start: 20080708, end: 20100218
  4. VYTORIN [Suspect]
     Route: 048
     Dates: start: 20090121, end: 20100218

REACTIONS (1)
  - DEATH [None]
